FAERS Safety Report 11493103 (Version 1)
Quarter: 2015Q3

REPORT INFORMATION
  Report Type: Spontaneous
  Country: US (occurrence: None)
  Receive Date: 20150910
  Receipt Date: 20150910
  Transmission Date: 20151125
  Serious: No
  Sender: FDA-Public Use
  Company Number: None

PATIENT
  Age: 71 Year
  Sex: Female
  Weight: 91 kg

DRUGS (3)
  1. CARBOPLATIN. [Suspect]
     Active Substance: CARBOPLATIN
     Dates: end: 20150813
  2. TAXOL [Suspect]
     Active Substance: PACLITAXEL
     Dates: end: 20150813
  3. METFORMIN HYDROCHLORIDE. [Suspect]
     Active Substance: METFORMIN HYDROCHLORIDE
     Dates: end: 20150903

REACTIONS (3)
  - Viral infection [None]
  - Herpes zoster [None]
  - Rash [None]

NARRATIVE: CASE EVENT DATE: 20150903
